FAERS Safety Report 7206680-X (Version None)
Quarter: 2011Q1

REPORT INFORMATION
  Report Type: 
  Country: None (occurrence: None)
  Receive Date: 20110103
  Receipt Date: 20101223
  Transmission Date: 20110831
  Serious: No
  Sender: FDA-Public Use
  Company Number: US-PFIZER INC-2010160414

PATIENT
  Age: 38 Year
  Sex: Female
  Weight: 52.154 kg

DRUGS (2)
  1. ADVIL CONGESTION RELIEF [Suspect]
  2. ADVIL CONGESTION RELIEF [Suspect]
     Indication: SINUS HEADACHE
     Dosage: 1 CAPLET AS DIRECTED
     Route: 048
     Dates: start: 20101121

REACTIONS (1)
  - DRUG INEFFECTIVE [None]
